FAERS Safety Report 6732487-3 (Version None)
Quarter: 2010Q2

REPORT INFORMATION
  Report Type: 
  Country: None (occurrence: None)
  Receive Date: 20100519
  Receipt Date: 20100512
  Transmission Date: 20101027
  Serious: Yes (Other)
  Sender: FDA-Public Use
  Company Number: US-PFIZER INC-2008083930

PATIENT
  Sex: Female
  Weight: 106.57 kg

DRUGS (32)
  1. CHANTIX [Suspect]
     Indication: SMOKING CESSATION THERAPY
     Dosage: 0.5 MG, 1X/DAY
     Route: 048
     Dates: start: 20080919
  2. CHANTIX [Interacting]
     Dosage: 0.5 MG, 1X/DAY, DAILY
     Route: 048
     Dates: start: 20100218
  3. CHANTIX [Interacting]
     Dosage: 0.5 MG, 2X/DAY
     Dates: start: 20100201
  4. CHANTIX [Interacting]
     Dosage: 1 MG, 2X/DAY
     Route: 048
  5. CHANTIX [Interacting]
     Dosage: UNK
     Route: 048
     Dates: start: 20100101
  6. OXYCONTIN [Interacting]
     Indication: ARTHRITIS
     Dosage: 80 MG, 3X/DAY
  7. PREDNISONE [Concomitant]
     Indication: PNEUMONIA
     Dosage: 10 MG, 1X/DAY
  8. QUININE [Concomitant]
     Dosage: UNK
  9. LEVOTHYROXINE SODIUM [Concomitant]
     Indication: THYROID DISORDER
     Dosage: UNK
  10. GEMFIBROZIL [Concomitant]
     Indication: BLOOD CHOLESTEROL INCREASED
     Dosage: 600 MG, 1X/DAY
  11. GEMFIBROZIL [Concomitant]
     Indication: BLOOD CHOLESTEROL
  12. NEURONTIN [Concomitant]
     Indication: NEURALGIA
     Dosage: UNK
  13. PLAQUENIL [Concomitant]
     Dosage: UNK
  14. VESICARE [Concomitant]
     Dosage: UNK
  15. FOLIC ACID [Concomitant]
     Dosage: UNK
  16. CALCIUM [Concomitant]
     Dosage: UNK
  17. VITAMIN D [Concomitant]
     Dosage: UNK
  18. ADVAIR DISKUS 100/50 [Concomitant]
     Indication: ASTHMA
     Dosage: UNK
  19. LORAZEPAM [Concomitant]
     Indication: DEPRESSION
     Dosage: UNK
  20. COMBIVENT [Concomitant]
     Indication: ASTHMA
     Dosage: UNK
     Route: 055
  21. LISINOPRIL [Concomitant]
     Indication: HYPERTENSION
     Dosage: 0.5 MG, UNK
  22. NYSTATIN [Concomitant]
     Indication: ORAL CANDIDIASIS
     Dosage: UNK
  23. CELEBREX [Concomitant]
     Indication: ARTHRITIS
     Dosage: 200 MG, 6X/WEEK
     Route: 048
  24. PHOSPHORUS [Concomitant]
     Dosage: UNK
  25. LASIX [Concomitant]
     Dosage: 20 MG, 1X/DAY
  26. ACETYLSALICYLIC ACID [Concomitant]
     Dosage: 81 MG, 1X/DAY
  27. IRON [Concomitant]
     Dosage: UNK
  28. TRAZODONE [Concomitant]
     Dosage: UNK
  29. KLOR-CON [Concomitant]
     Indication: MINERAL SUPPLEMENTATION
     Dosage: UNK
  30. DARIFENACIN HYDROBROMIDE [Concomitant]
     Indication: BLADDER DISORDER
     Dosage: 7.5 MG, 1X/DAY
     Route: 048
  31. LIDODERM [Concomitant]
     Dosage: UNK
  32. LEVOTHYROXINE [Concomitant]
     Dosage: UNK

REACTIONS (45)
  - ABASIA [None]
  - ABNORMAL DREAMS [None]
  - AGITATION [None]
  - ANGER [None]
  - ANXIETY [None]
  - ARTHRALGIA [None]
  - BACK PAIN [None]
  - CONFUSIONAL STATE [None]
  - CONSTIPATION [None]
  - DEPRESSED MOOD [None]
  - DEPRESSION [None]
  - DIARRHOEA [None]
  - DISTURBANCE IN ATTENTION [None]
  - DRUG DOSE OMISSION [None]
  - DRUG EFFECT DECREASED [None]
  - DRUG INTERACTION [None]
  - EMOTIONAL DISORDER [None]
  - EXOSTOSIS [None]
  - FALL [None]
  - FATIGUE [None]
  - FEELING ABNORMAL [None]
  - FEELING GUILTY [None]
  - FLATULENCE [None]
  - FRUSTRATION [None]
  - HEADACHE [None]
  - HYPERPHAGIA [None]
  - HYPERSOMNIA [None]
  - INCREASED APPETITE [None]
  - INSOMNIA [None]
  - IRRITABILITY [None]
  - LUNG INFECTION [None]
  - MALAISE [None]
  - MEMORY IMPAIRMENT [None]
  - MIDDLE INSOMNIA [None]
  - MUSCLE SPASMS [None]
  - MUSCULOSKELETAL PAIN [None]
  - NAUSEA [None]
  - OEDEMA PERIPHERAL [None]
  - PAIN [None]
  - PAIN IN EXTREMITY [None]
  - PERIPHERAL COLDNESS [None]
  - PRODUCTIVE COUGH [None]
  - SLEEP DISORDER [None]
  - STRESS [None]
  - WEIGHT INCREASED [None]
